FAERS Safety Report 5983326-X (Version None)
Quarter: 2008Q4

REPORT INFORMATION
  Report Type: 
  Country: None (occurrence: None)
  Receive Date: 20081208
  Receipt Date: 20080305
  Transmission Date: 20090506
  Serious: No
  Sender: FDA-Public Use
  Company Number: US-AMGEN-KDL267827

PATIENT
  Sex: Female
  Weight: 75.4 kg

DRUGS (8)
  1. ENBREL [Suspect]
     Indication: RHEUMATOID ARTHRITIS
     Route: 058
     Dates: start: 20080125
  2. METHOTREXATE [Concomitant]
     Dates: start: 20070607
  3. PREMARIN [Concomitant]
     Dates: start: 19860101
  4. LYRICA [Concomitant]
     Dates: start: 20060101
  5. CYMBALTA [Concomitant]
     Dates: start: 20050101
  6. FOSAMAX [Concomitant]
     Dates: start: 20020101
  7. FOLIC ACID [Concomitant]
     Dates: start: 20070607
  8. CALCIUM [Concomitant]
     Dates: start: 20060601

REACTIONS (1)
  - INJECTION SITE HAEMATOMA [None]
